FAERS Safety Report 15440476 (Version 1)
Quarter: 2018Q3

REPORT INFORMATION
  Report Type: Spontaneous
  Country: DE (occurrence: DE)
  Receive Date: 20180928
  Receipt Date: 20180928
  Transmission Date: 20181010
  Serious: Yes (Life-Threatening, Hospitalization)
  Sender: FDA-Public Use
  Company Number: PHHY2018DE109669

PATIENT
  Age: 46 Year
  Sex: Female

DRUGS (1)
  1. VALPROATE SODIUM. [Suspect]
     Active Substance: VALPROATE SODIUM
     Indication: PRODUCT USED FOR UNKNOWN INDICATION
     Dosage: UNK (INGESTION OF 56 G OF VALPROATE BASED ON THE EMPTIED MEDICATION BOXES)
     Route: 048

REACTIONS (7)
  - Suicide attempt [Recovered/Resolved]
  - Loss of consciousness [Recovered/Resolved]
  - Intentional overdose [Unknown]
  - Suicidal ideation [Not Recovered/Not Resolved]
  - Toxicity to various agents [Unknown]
  - Ammonia increased [Recovered/Resolved]
  - Coma scale abnormal [Recovered/Resolved]
